FAERS Safety Report 8472378-3 (Version None)
Quarter: 2012Q2

REPORT INFORMATION
  Report Type: 
  Country: None (occurrence: None)
  Receive Date: 20120323
  Receipt Date: 20111025
  Transmission Date: 20120825
  Serious: Yes (Hospitalization)
  Sender: FDA-Public Use
  Company Number: 163-21880-11103142

PATIENT
  Age: 70 Year
  Sex: Female
  Weight: 48.0813 kg

DRUGS (12)
  1. CALCIUM + D (OS-CAL) [Concomitant]
  2. LEVOTHYROXINE SODIUM [Concomitant]
  3. PACERONE [Concomitant]
  4. MULTIVITAMIN [Concomitant]
  5. METOPROLOL ER (METOPROLOL TARTRATE) [Concomitant]
  6. WARFARIN SODIUM [Concomitant]
  7. VELCADE [Concomitant]
  8. SIMVASTATIN [Concomitant]
  9. REVLIMID [Suspect]
     Indication: MULTIPLE MYELOMA
     Dosage: 25 MG, X 21, PO
     Route: 048
     Dates: start: 20101230, end: 20110929
  10. DEXAMETHASONE [Concomitant]
  11. FUROSEMIDE [Concomitant]
  12. ZOMETA [Concomitant]

REACTIONS (3)
  - CARDIAC FAILURE CONGESTIVE [None]
  - WHITE BLOOD CELL COUNT DECREASED [None]
  - PNEUMONIA [None]
